FAERS Safety Report 9242766 (Version 1)
Quarter: 2013Q2

REPORT INFORMATION
  Report Type: Spontaneous
  Country: AU (occurrence: AU)
  Receive Date: 20130419
  Receipt Date: 20130419
  Transmission Date: 20140414
  Serious: Yes (Other)
  Sender: FDA-Public Use
  Company Number: AU-ROCHE-1214886

PATIENT
  Age: 63 Year
  Sex: Female

DRUGS (9)
  1. TAMIFLU [Suspect]
     Indication: PRODUCT USED FOR UNKNOWN INDICATION
     Route: 048
     Dates: start: 20130113
  2. TAMIFLU [Suspect]
     Dosage: DOSE REDUCED
     Route: 048
  3. ACICLOVIR [Suspect]
     Indication: PRODUCT USED FOR UNKNOWN INDICATION
     Route: 042
     Dates: start: 20130114, end: 20130116
  4. CEFTRIAXONE [Concomitant]
  5. FOLIC ACID [Concomitant]
  6. HEPARIN SODIUM [Concomitant]
  7. PANTOPRAZOLE [Concomitant]
  8. PARACETAMOL [Concomitant]
  9. PHENYTOIN SODIUM [Concomitant]

REACTIONS (1)
  - Renal failure acute [Recovered/Resolved]
